FAERS Safety Report 9648541 (Version 1)
Quarter: 2013Q4

REPORT INFORMATION
  Report Type: Report from Study
  Country: ID (occurrence: ID)
  Receive Date: 20131028
  Receipt Date: 20131028
  Transmission Date: 20140711
  Serious: Yes (Hospitalization)
  Sender: FDA-Public Use
  Company Number: ID-SA-2013SA107501

PATIENT
  Age: 30 Year
  Sex: Male

DRUGS (2)
  1. PRIMAQUINE PHOSPHATE [Suspect]
     Indication: PRODUCT USED FOR UNKNOWN INDICATION
     Route: 065
     Dates: end: 20130520
  2. ARTEMISININ [Suspect]
     Indication: PRODUCT USED FOR UNKNOWN INDICATION
     Route: 065
     Dates: end: 20130520

REACTIONS (1)
  - Hand fracture [Not Recovered/Not Resolved]
